FAERS Safety Report 5065852-3 (Version None)
Quarter: 2006Q3

REPORT INFORMATION
  Report Type: 
  Country: None (occurrence: None)
  Receive Date: 20060728
  Receipt Date: 20060728
  Transmission Date: 20061208
  Serious: No
  Sender: FDA-Public Use
  Company Number: None

PATIENT
  Sex: Male

DRUGS (2)
  1. COPPERTONE KIDS SUNSCREEN CONTINUOUS SPRAY 50 SPF [Suspect]
     Indication: PROPHYLAXIS
     Dosage: TOPICALLY ONE TIME
     Route: 061
  2. COPPERTONE KIDS SUNSCREEN CONTINUOUS SPRAY 50 SPF [Suspect]
     Indication: SUNBURN
     Dosage: TOPICALLY ONE TIME
     Route: 061

REACTIONS (2)
  - PHARMACEUTICAL PRODUCT COMPLAINT [None]
  - RASH [None]
